FAERS Safety Report 4803637-0 (Version None)
Quarter: 2005Q4

REPORT INFORMATION
  Report Type: 
  Country: None (occurrence: None)
  Receive Date: 20051014
  Receipt Date: 20050225
  Transmission Date: 20060501
  Serious: Yes (Life-Threatening)
  Sender: FDA-Public Use
  Company Number: 05P-163-0292180-00

PATIENT
  Age: 40 Year
  Sex: Male

DRUGS (4)
  1. KALETRA [Suspect]
     Dates: end: 20050121
  2. TRUVADA [Suspect]
     Dosage: 1 IN 1 D, ORAL
     Route: 048
     Dates: start: 20041220, end: 20050121
  3. HEPSERA [Concomitant]
  4. PENICILLIN [Concomitant]

REACTIONS (4)
  - ABDOMINAL DISTENSION [None]
  - HEPATIC ENZYME INCREASED [None]
  - HEPATOSPLENOMEGALY [None]
  - JAUNDICE [None]
